FAERS Safety Report 4582142-3 (Version None)
Quarter: 2005Q1

REPORT INFORMATION
  Report Type: 
  Country: None (occurrence: None)
  Receive Date: 20050119
  Receipt Date: 20040202
  Transmission Date: 20050727
  Serious: Yes (Hospitalization)
  Sender: FDA-Public Use
  Company Number: A03200400322

PATIENT
  Age: 80 Year
  Sex: Female
  Weight: 65.318 kg

DRUGS (7)
  1. PLAVIX [Suspect]
     Indication: POOR PERIPHERAL CIRCULATION
     Dosage: 1 DF QD ORAL
     Route: 048
     Dates: start: 20020101, end: 20030101
  2. PLAVIX [Suspect]
     Indication: TRANSIENT ISCHAEMIC ATTACK
     Dosage: 1 DF QD ORAL
     Route: 048
     Dates: start: 20020101, end: 20030101
  3. ACETYLSALICYLIC ACID [Concomitant]
  4. CILOSTAZOL [Concomitant]
  5. AMLODIPINE BESYLATE [Concomitant]
  6. IRBESARTAN [Concomitant]
  7. LABETALOL HCL [Concomitant]

REACTIONS (2)
  - GASTRIC HAEMORRHAGE [None]
  - GASTRITIS EROSIVE [None]
